FAERS Safety Report 7285450-0 (Version None)
Quarter: 2011Q1

REPORT INFORMATION
  Report Type: 
  Country: None (occurrence: None)
  Receive Date: 20110210
  Receipt Date: 20101227
  Transmission Date: 20110831
  Serious: Yes (Hospitalization, Other)
  Sender: FDA-Public Use
  Company Number: US-BAYER-201015089NA

PATIENT
  Sex: Female
  Weight: 48.98 kg

DRUGS (1)
  1. YAZ [Suspect]
     Indication: PRODUCT USED FOR UNKNOWN INDICATION
     Route: 048
     Dates: start: 20090201, end: 20090511

REACTIONS (6)
  - HYPOAESTHESIA [None]
  - NAUSEA [None]
  - WEIGHT BEARING DIFFICULTY [None]
  - DEEP VEIN THROMBOSIS [None]
  - OEDEMA PERIPHERAL [None]
  - DYSPNOEA [None]
